FAERS Safety Report 23336536 (Version 1)
Quarter: 2023Q4

REPORT INFORMATION
  Report Type: Spontaneous
  Country: CA (occurrence: None)
  Receive Date: 20231226
  Receipt Date: 20231226
  Transmission Date: 20240110
  Serious: Yes (Other)
  Sender: FDA-Public Use
  Company Number: 2023A290185

PATIENT
  Age: 78 Year
  Sex: Female

DRUGS (19)
  1. ROSUVASTATIN CALCIUM [Suspect]
     Active Substance: ROSUVASTATIN CALCIUM
     Indication: Product used for unknown indication
  2. RITUXIMAB [Suspect]
     Active Substance: RITUXIMAB
     Indication: Vasculitis
     Route: 041
  3. RITUXIMAB [Suspect]
     Active Substance: RITUXIMAB
     Indication: Vasculitis
     Route: 041
  4. RITUXIMAB [Suspect]
     Active Substance: RITUXIMAB
     Indication: Vasculitis
  5. RITUXIMAB [Suspect]
     Active Substance: RITUXIMAB
     Indication: Vasculitis
  6. ADVAIR HFA [Concomitant]
     Active Substance: FLUTICASONE PROPIONATE\SALMETEROL XINAFOATE
  7. AMLODIPINE BESYLATE [Concomitant]
     Active Substance: AMLODIPINE BESYLATE
     Indication: Blood pressure measurement
  8. ARIMIDEX [Concomitant]
     Active Substance: ANASTROZOLE
  9. AZATHIOPRINE [Concomitant]
     Active Substance: AZATHIOPRINE
  10. BENADRYL [Concomitant]
     Active Substance: DIPHENHYDRAMINE HYDROCHLORIDE
     Route: 048
  11. CALCIUM [Concomitant]
     Active Substance: CALCIUM
  12. LASIX [Concomitant]
     Active Substance: FUROSEMIDE
     Route: 048
  13. METHYLPREDNISOLONE SODIUM SUCCINATE [Concomitant]
     Active Substance: METHYLPREDNISOLONE SODIUM SUCCINATE
     Route: 042
  14. PANTOPRAZOLE [Concomitant]
     Active Substance: PANTOPRAZOLE
     Route: 042
  15. PREDNISONE [Concomitant]
     Active Substance: PREDNISONE
  16. RIVASTIGMINE [Concomitant]
     Active Substance: RIVASTIGMINE
  17. SULFAMETHOXAZOLE\TRIMETHOPRIM [Concomitant]
     Active Substance: SULFAMETHOXAZOLE\TRIMETHOPRIM
  18. TYLENOL [Concomitant]
     Active Substance: ACETAMINOPHEN
     Route: 048
  19. VENTOLIN [Concomitant]
     Active Substance: ALBUTEROL SULFATE

REACTIONS (7)
  - Blood creatinine increased [Not Recovered/Not Resolved]
  - Dementia [Not Recovered/Not Resolved]
  - Pneumonia [Not Recovered/Not Resolved]
  - Polypectomy [Not Recovered/Not Resolved]
  - Urinary casts present [Not Recovered/Not Resolved]
  - White blood cells urine positive [Not Recovered/Not Resolved]
  - Blood creatine phosphokinase increased [Not Recovered/Not Resolved]
